FAERS Safety Report 11909995 (Version 1)
Quarter: 2016Q1

REPORT INFORMATION
  Report Type: Spontaneous
  Country: CA (occurrence: None)
  Receive Date: 20160111
  Receipt Date: 20160111
  Transmission Date: 20160526
  Serious: No
  Sender: FDA-Public Use
  Company Number: None

PATIENT
  Age: 38 Year
  Sex: Female
  Weight: 55.79 kg

DRUGS (3)
  1. CANESTEN [Concomitant]
     Active Substance: CLOTRIMAZOLE
  2. ACIDOPHOLOUS [Concomitant]
  3. TERCONAZOLE VAG 0.4% CR TARO [Suspect]
     Active Substance: TERCONAZOLE
     Indication: VULVOVAGINAL MYCOTIC INFECTION
     Dosage: ONE TUBE A DAY
     Route: 067
     Dates: start: 20160108, end: 20160108

REACTIONS (1)
  - Hypersensitivity [None]

NARRATIVE: CASE EVENT DATE: 20160108
